FAERS Safety Report 10046737 (Version 4)
Quarter: 2014Q3

REPORT INFORMATION
  Report Type: Spontaneous
  Country: GB (occurrence: GB)
  Receive Date: 20140331
  Receipt Date: 20140710
  Transmission Date: 20150326
  Serious: Yes (Other)
  Sender: FDA-Public Use
  Company Number: GB-AMGEN-GBRSP2014019055

PATIENT
  Sex: Female

DRUGS (1)
  1. ARANESP [Suspect]
     Active Substance: DARBEPOETIN ALFA
     Indication: PRODUCT USED FOR UNKNOWN INDICATION
     Dosage: 100 MUG, QWK
     Route: 065

REACTIONS (6)
  - Blood product transfusion dependent [Unknown]
  - Peritonitis [Unknown]
  - Drug resistance [Unknown]
  - Injection site reaction [Recovered/Resolved]
  - Hyperparathyroidism [Unknown]
  - Peritoneal dialysis [Unknown]
